FAERS Safety Report 10029560 (Version 1)
Quarter: 2014Q1

REPORT INFORMATION
  Report Type: Spontaneous
  Country: US (occurrence: None)
  Receive Date: 20140320
  Receipt Date: 20140320
  Transmission Date: 20141002
  Serious: Yes (Disabling, Other)
  Sender: FDA-Public Use
  Company Number: None

PATIENT
  Age: 50 Year
  Sex: Female
  Weight: 58.97 kg

DRUGS (1)
  1. TOPIRAMATE [Suspect]
     Indication: MIGRAINE
     Dosage: 2 PER DAY TWICE DAILY TAKEN BY MOUTH
     Route: 048

REACTIONS (12)
  - Headache [None]
  - Hypoaesthesia [None]
  - Hypoaesthesia [None]
  - Fatigue [None]
  - Paraesthesia [None]
  - Hypoaesthesia [None]
  - Feeling cold [None]
  - Nightmare [None]
  - Disturbance in attention [None]
  - Thinking abnormal [None]
  - Depressed mood [None]
  - Nausea [None]
